FAERS Safety Report 12428553 (Version 1)
Quarter: 2016Q2

REPORT INFORMATION
  Report Type: Spontaneous
  Country: US (occurrence: US)
  Receive Date: 20160602
  Receipt Date: 20160602
  Transmission Date: 20160815
  Serious: No
  Sender: FDA-Public Use
  Company Number: US-BAUSCH-BL-2015-021130

PATIENT
  Age: 12 Year
  Sex: Male

DRUGS (1)
  1. ELIDEL [Suspect]
     Active Substance: PIMECROLIMUS
     Indication: PRODUCT USED FOR UNKNOWN INDICATION
     Route: 061
     Dates: start: 20150902, end: 20150902

REACTIONS (1)
  - Application site pain [Recovered/Resolved]

NARRATIVE: CASE EVENT DATE: 20150902
